FAERS Safety Report 5131325-2 (Version None)
Quarter: 2006Q4

REPORT INFORMATION
  Report Type: 
  Country: None (occurrence: None)
  Receive Date: 20061016
  Receipt Date: 20060928
  Transmission Date: 20070319
  Serious: Yes (Hospitalization)
  Sender: FDA-Public Use
  Company Number: US200609007399

PATIENT
  Age: 78 Year
  Sex: Female

DRUGS (4)
  1. FORTEO [Suspect]
     Indication: OSTEOPOROSIS
     Dates: start: 20041201
  2. FORTEO [Concomitant]
  3. PLAVIX [Concomitant]
  4. ASPIRIN [Concomitant]

REACTIONS (5)
  - BONE PAIN [None]
  - CONTUSION [None]
  - DRUG INEFFECTIVE [None]
  - PHARMACEUTICAL PRODUCT COMPLAINT [None]
  - UPPER LIMB FRACTURE [None]
